FAERS Safety Report 20976750 (Version 1)
Quarter: 2022Q2

REPORT INFORMATION
  Report Type: Spontaneous
  Country: BR (occurrence: BR)
  Receive Date: 20220617
  Receipt Date: 20220617
  Transmission Date: 20220721
  Serious: Yes (Death, Other)
  Sender: FDA-Public Use
  Company Number: BR-AMGEN-BRASP2022099485

PATIENT

DRUGS (2)
  1. ADALIMUMAB [Suspect]
     Active Substance: ADALIMUMAB
     Indication: Colitis ulcerative
     Route: 065
  2. AZATHIOPRINE [Concomitant]
     Active Substance: AZATHIOPRINE
     Indication: Colitis ulcerative
     Route: 065

REACTIONS (5)
  - Colitis [Fatal]
  - Infection [Fatal]
  - Therapeutic product effect decreased [Unknown]
  - Injection site reaction [Unknown]
  - Adverse event [Unknown]
